FAERS Safety Report 21351543 (Version 1)
Quarter: 2022Q3

REPORT INFORMATION
  Report Type: Spontaneous
  Country: US (occurrence: US)
  Receive Date: 20220919
  Receipt Date: 20220919
  Transmission Date: 20221027
  Serious: Yes (Hospitalization, Other)
  Sender: FDA-Public Use
  Company Number: US-GALDERMA-US2022012999

PATIENT

DRUGS (1)
  1. DOXYCYCLINE [Suspect]
     Active Substance: DOXYCYCLINE
     Indication: Plasmodium falciparum infection
     Dosage: UNK
     Route: 048

REACTIONS (11)
  - Chills [Recovered/Resolved]
  - Nausea [Recovered/Resolved]
  - Vomiting [Recovered/Resolved]
  - Dizziness [Recovered/Resolved]
  - Malaise [Recovered/Resolved]
  - Sepsis [Recovered/Resolved]
  - Acute kidney injury [Recovered/Resolved]
  - Influenza [Recovered/Resolved]
  - Asthenia [Recovered/Resolved]
  - Drug intolerance [Recovered/Resolved]
  - Intentional product use issue [Recovered/Resolved]
